FAERS Safety Report 7098192-1 (Version None)
Quarter: 2010Q4

REPORT INFORMATION
  Report Type: 
  Country: None (occurrence: None)
  Receive Date: 20101112
  Receipt Date: 20100104
  Transmission Date: 20110411
  Serious: No
  Sender: FDA-Public Use
  Company Number: US-KINGPHARMUSA00001-K201000005

PATIENT
  Age: 45 Year
  Sex: Female

DRUGS (4)
  1. BICILLIN L-A [Suspect]
     Indication: STREPTOCOCCAL INFECTION
     Dosage: 1200000 U, SINGLE
     Route: 030
     Dates: start: 20100104, end: 20100104
  2. ZYRTEC [Concomitant]
     Dosage: UNK
  3. CALCIUM [Concomitant]
     Dosage: UNK
  4. VITAMINS [Concomitant]
     Dosage: UNK

REACTIONS (2)
  - EXPIRED DRUG ADMINISTERED [None]
  - NO ADVERSE EVENT [None]
